FAERS Safety Report 7527448-0 (Version None)
Quarter: 2011Q2

REPORT INFORMATION
  Report Type: 
  Country: None (occurrence: None)
  Receive Date: 20110603
  Receipt Date: 20110525
  Transmission Date: 20111010
  Serious: Yes (Death)
  Sender: FDA-Public Use
  Company Number: JPI-P-014787

PATIENT
  Age: 52 Year
  Sex: Male

DRUGS (6)
  1. BENAZEPRIL HYDROCHLORIDE [Concomitant]
  2. XYREM [Suspect]
     Indication: PRODUCT USED FOR UNKNOWN INDICATION
     Dosage: 6 GM (3 GM,2 IN 1 D),ORAL ; 7.5 GM (3.75 GM,2 IN 1 D),ORAL
     Route: 048
     Dates: start: 20040330, end: 20091116
  3. XYREM [Suspect]
     Indication: PRODUCT USED FOR UNKNOWN INDICATION
     Dosage: 6 GM (3 GM,2 IN 1 D),ORAL ; 7.5 GM (3.75 GM,2 IN 1 D),ORAL
     Route: 048
     Dates: start: 20031209
  4. HYDROCODONE BITARTRATE AND ACETAMINOPHEN [Concomitant]
  5. OXYCODONE HCL [Concomitant]
  6. METOPROLOL [Concomitant]

REACTIONS (1)
  - SUDDEN CARDIAC DEATH [None]
